FAERS Safety Report 15158991 (Version 1)
Quarter: 2018Q3

REPORT INFORMATION
  Report Type: Spontaneous
  Country: FR (occurrence: FR)
  Receive Date: 20180718
  Receipt Date: 20180718
  Transmission Date: 20181010
  Serious: Yes (Hospitalization, Other)
  Sender: FDA-Public Use
  Company Number: FR-PFIZER INC-2018285457

PATIENT
  Age: 77 Year
  Sex: Female
  Weight: 75 kg

DRUGS (4)
  1. PANTOPRAZOLE [Suspect]
     Active Substance: PANTOPRAZOLE
     Indication: HELICOBACTER GASTRITIS
     Dosage: 60 MG, QD
     Route: 048
     Dates: start: 20151218, end: 20160101
  2. CLARITHROMYCINE [Suspect]
     Active Substance: CLARITHROMYCIN
     Indication: HELICOBACTER GASTRITIS
     Dosage: 1000 MG, QD
     Route: 048
     Dates: start: 20151218, end: 20160101
  3. METRONIDAZOLE. [Suspect]
     Active Substance: METRONIDAZOLE
     Indication: HELICOBACTER GASTRITIS
     Dosage: 1000 MG, QD
     Route: 048
     Dates: start: 20151218, end: 20160101
  4. AMOXICILLINE [Suspect]
     Active Substance: AMOXICILLIN
     Indication: HELICOBACTER GASTRITIS
     Dosage: 2 G, QD
     Route: 048
     Dates: start: 20151218, end: 20160101

REACTIONS (4)
  - Acute kidney injury [Recovering/Resolving]
  - Vomiting [Recovered/Resolved]
  - Dehydration [Recovered/Resolved]
  - Renal tubular necrosis [Recovering/Resolving]

NARRATIVE: CASE EVENT DATE: 201601
